FAERS Safety Report 16303344 (Version 2)
Quarter: 2019Q2

REPORT INFORMATION
  Report Type: Spontaneous
  Country: PT (occurrence: PT)
  Receive Date: 20190513
  Receipt Date: 20190614
  Transmission Date: 20190711
  Serious: Yes (Hospitalization, Other)
  Sender: FDA-Public Use
  Company Number: PT-ACCORD-126552

PATIENT
  Age: 27 Year
  Sex: Female

DRUGS (16)
  1. METHYLPREDNISOLONE. [Suspect]
     Active Substance: METHYLPREDNISOLONE
     Indication: LUPUS NEPHRITIS
     Dosage: 500 MG, UNKNOWN
     Route: 042
     Dates: start: 2012
  2. COTRIMOXAZOLE [Suspect]
     Active Substance: SULFAMETHOXAZOLE\TRIMETHOPRIM
     Indication: PROPHYLAXIS
     Dosage: UNK
     Route: 065
     Dates: start: 2012
  3. PREDNISONE. [Suspect]
     Active Substance: PREDNISONE
     Indication: THROMBOTIC MICROANGIOPATHY
     Dosage: 80 MG, QD
     Route: 065
  4. MYCOPHENOLIC ACID. [Suspect]
     Active Substance: MYCOPHENOLIC ACID
     Indication: LUPUS NEPHRITIS
     Dosage: 1.5 GRAM DAILY 1.5 G, DAILY
     Route: 065
     Dates: start: 2012
  5. CEFTRIAXONE/CEFTRIAXONE SODIUM [Concomitant]
     Indication: ESCHERICHIA INFECTION
  6. LISINOPRIL. [Concomitant]
     Active Substance: LISINOPRIL
     Indication: LUPUS CYSTITIS
     Dosage: 2.5 MILLIGRAM DAILY; 2.5 MG, DAILY
     Route: 065
     Dates: start: 2012
  7. CALCIUM/ERGOCALCIFEROL [Concomitant]
     Indication: SUPPLEMENTATION THERAPY
     Dosage: UNK
     Route: 065
     Dates: start: 2012
  8. OMEPRAZOLE. [Concomitant]
     Active Substance: OMEPRAZOLE
     Indication: LUPUS CYSTITIS
     Dosage: 20 MILLIGRAM DAILY; 20 MG, DAILY
     Route: 065
     Dates: start: 2012
  9. PREDNISOLONE. [Suspect]
     Active Substance: PREDNISOLONE
     Indication: LUPUS CYSTITIS
     Dosage: FORM STRENGTH: UNK UNK
     Route: 065
  10. FUROSEMIDE. [Concomitant]
     Active Substance: FUROSEMIDE
     Indication: LUPUS CYSTITIS
     Dosage: 160 MILLIGRAM DAILY; 160 MG, DAILY
     Route: 065
     Dates: start: 2012
  11. NYSTATIN/NYSTATIN/LIPOSOME [Concomitant]
     Indication: ORAL CANDIDIASIS
     Dosage: 20 MILLIGRAM DAILY; UNK
     Route: 065
     Dates: start: 2012
  12. HYDROXYCHLOROQUINE [Concomitant]
     Active Substance: HYDROXYCHLOROQUINE
     Indication: PRODUCT USED FOR UNKNOWN INDICATION
     Dosage: 400 MG, QD
     Route: 065
  13. CYCLOPHOSPHAMIDE/CYCLOPHOSPHAMIDE MONOHYDRATE [Suspect]
     Active Substance: CYCLOPHOSPHAMIDE
     Indication: LUPUS CYSTITIS
     Dosage: 25 MILLIGRAM DAILY; 750 MG, ONCE A MONTH
     Route: 042
     Dates: start: 2012
  14. COTRIMOXAZOLE [Suspect]
     Active Substance: SULFAMETHOXAZOLE\TRIMETHOPRIM
     Indication: PROPHYLAXIS
     Route: 065
     Dates: start: 2012
  15. RITUXIMAB. [Suspect]
     Active Substance: RITUXIMAB
     Indication: LUPUS CYSTITIS
     Dosage: 52.5 MG/M2 DAILY; 375 MG/M2, 1/WEEK
     Route: 065
     Dates: start: 2012
  16. TAMSULOSIN/TAMSULOSIN HYDROCHLORIDE [Concomitant]
     Indication: NEPHROPATHY
     Dosage: 0.4 MILLIGRAM DAILY 0.4 MG, DAILY
     Route: 065
     Dates: start: 2012

REACTIONS (12)
  - Normochromic anaemia [Unknown]
  - Candiduria [Unknown]
  - Oral candidiasis [Unknown]
  - Microangiopathic haemolytic anaemia [Unknown]
  - Pancytopenia [Recovering/Resolving]
  - Generalised oedema [Unknown]
  - Thrombocytopenia [Unknown]
  - Chorioretinitis [Recovering/Resolving]
  - Bone marrow toxicity [Recovered/Resolved]
  - Off label use [Unknown]
  - Febrile neutropenia [Unknown]
  - Leukopenia [Unknown]
